FAERS Safety Report 21958793 (Version 1)
Quarter: 2023Q1

REPORT INFORMATION
  Report Type: Spontaneous
  Country: US (occurrence: None)
  Receive Date: 20230203
  Receipt Date: 20230203
  Transmission Date: 20230418
  Serious: No
  Sender: FDA-Public Use
  Company Number: None

PATIENT
  Sex: Female

DRUGS (1)
  1. HUMIRA [Suspect]
     Active Substance: ADALIMUMAB
     Dosage: OTHER QUANTITY : 40MG/0.ML;?FREQUENCY : EVERY OTHER WEEK;?
     Route: 058
     Dates: start: 20221116

REACTIONS (2)
  - Drug ineffective [None]
  - Therapy cessation [None]
